FAERS Safety Report 25145218 (Version 2)
Quarter: 2025Q2

REPORT INFORMATION
  Report Type: Spontaneous
  Country: JP (occurrence: JP)
  Receive Date: 20250401
  Receipt Date: 20250526
  Transmission Date: 20250717
  Serious: Yes (Death, Life-Threatening, Hospitalization, Other)
  Sender: MERCK SHARP & DOHME LLC
  Company Number: JP-009507513-2268836

PATIENT
  Age: 8 Decade
  Sex: Male

DRUGS (1)
  1. KEYTRUDA [Suspect]
     Active Substance: PEMBROLIZUMAB
     Indication: Lung adenocarcinoma stage IV
     Route: 041
     Dates: start: 202409, end: 202503

REACTIONS (9)
  - Cytomegalovirus infection [Fatal]
  - Immune-mediated encephalitis [Unknown]
  - Fungal infection [Fatal]
  - Malignant neoplasm progression [Unknown]
  - Immune-mediated adrenal insufficiency [Unknown]
  - Altered state of consciousness [Unknown]
  - Immune-mediated myocarditis [Unknown]
  - Shock [Fatal]
  - Sputum retention [Fatal]

NARRATIVE: CASE EVENT DATE: 20250101
